FAERS Safety Report 21294822 (Version 5)
Quarter: 2022Q4

REPORT INFORMATION
  Report Type: Other
  Country: ES (occurrence: ES)
  Receive Date: 20220905
  Receipt Date: 20221222
  Transmission Date: 20230113
  Serious: Yes (Hospitalization)
  Sender: FDA-Public Use
  Company Number: ES-ROCHE-3174188

PATIENT
  Age: 75 Year
  Sex: Female

DRUGS (2)
  1. BENDAMUSTINE [Suspect]
     Active Substance: BENDAMUSTINE
     Indication: Follicular lymphoma stage IV
     Dosage: UNK (6 CYCLES)
     Route: 065
  2. RITUXIMAB [Suspect]
     Active Substance: RITUXIMAB
     Indication: Follicular lymphoma stage IV
     Dosage: UNK (LAST DOSE 14 WEEKS BEFORE DIAGNOSIS OF ASYMPTOMATIC SARS-COV-2 INFECTION, 6 CYCLES)
     Route: 041

REACTIONS (2)
  - COVID-19 [Unknown]
  - Pneumonia viral [Unknown]
